FAERS Safety Report 21668651 (Version 1)
Quarter: 2022Q4

REPORT INFORMATION
  Report Type: Spontaneous
  Country: US (occurrence: None)
  Receive Date: 20221130
  Receipt Date: 20221130
  Transmission Date: 20230113
  Serious: Yes (Other)
  Sender: FDA-Public Use
  Company Number: None

PATIENT
  Age: 37 Year
  Sex: Female

DRUGS (1)
  1. LACOSAMIDE [Suspect]
     Active Substance: LACOSAMIDE
     Indication: Seizure
     Dosage: VIMPAT 200MG DAW  ONE BID ORALLY?
     Route: 048
     Dates: start: 202204, end: 202211

REACTIONS (1)
  - Seizure [None]

NARRATIVE: CASE EVENT DATE: 20221130
